FAERS Safety Report 5013755-2 (Version None)
Quarter: 2006Q2

REPORT INFORMATION
  Report Type: 
  Country: None (occurrence: None)
  Receive Date: 20060530
  Receipt Date: 20060519
  Transmission Date: 20061013
  Serious: Yes (Other)
  Sender: FDA-Public Use
  Company Number: US-JNJFOC-20060505004

PATIENT
  Sex: Female
  Weight: 122.47 kg

DRUGS (9)
  1. DURAGESIC-100 [Suspect]
     Route: 062
  2. DURAGESIC-100 [Suspect]
     Route: 062
  3. SINGULAIR [Concomitant]
     Route: 048
  4. ZAROXOLYN [Concomitant]
     Route: 048
  5. PREMARIN [Concomitant]
     Indication: HORMONE REPLACEMENT THERAPY
     Route: 048
  6. POLY IRON FORTE [Concomitant]
     Route: 048
  7. POLY IRON FORTE [Concomitant]
     Indication: VITAMIN SUPPLEMENTATION
     Route: 048
  8. CLARINEX D [Concomitant]
     Route: 048
  9. LASIX [Concomitant]
     Route: 048

REACTIONS (5)
  - DERMATITIS CONTACT [None]
  - FIBROMYALGIA [None]
  - GASTROOESOPHAGEAL REFLUX DISEASE [None]
  - HYPOTHYROIDISM [None]
  - RESTLESS LEGS SYNDROME [None]
